FAERS Safety Report 8990375 (Version 2)
Quarter: 2013Q2

REPORT INFORMATION
  Report Type: Spontaneous
  Country: US (occurrence: US)
  Receive Date: 20121228
  Receipt Date: 20130429
  Transmission Date: 20140414
  Serious: No
  Sender: FDA-Public Use
  Company Number: US-009507513-1212USA009829

PATIENT
  Sex: Female
  Weight: 62.13 kg

DRUGS (2)
  1. FOLLISTIM AQ CARTRIDGE [Suspect]
     Indication: INFERTILITY
     Dosage: 200 IU, QD
     Route: 058
     Dates: start: 20121111, end: 20121114
  2. FOLLISTIM AQ CARTRIDGE [Suspect]
     Dosage: UNK

REACTIONS (3)
  - Drug ineffective [Unknown]
  - Drug dose omission [Unknown]
  - Product quality issue [Unknown]
